FAERS Safety Report 19088042 (Version 1)
Quarter: 2021Q2

REPORT INFORMATION
  Report Type: Spontaneous
  Country: US (occurrence: US)
  Receive Date: 20210402
  Receipt Date: 20210402
  Transmission Date: 20210717
  Serious: No
  Sender: FDA-Public Use
  Company Number: US-SA-2021SA109525

PATIENT
  Sex: Female

DRUGS (2)
  1. DUPIXENT [Suspect]
     Active Substance: DUPILUMAB
     Indication: ASTHMA
     Dosage: UNK
     Dates: start: 20190121, end: 20210121
  2. FASENRA [Concomitant]
     Active Substance: BENRALIZUMAB
     Dosage: 2 DF

REACTIONS (4)
  - Therapeutic response unexpected [Unknown]
  - Rebound eczema [Unknown]
  - Dermatitis atopic [Unknown]
  - Rhinitis allergic [Unknown]

NARRATIVE: CASE EVENT DATE: 2021
